FAERS Safety Report 19133935 (Version 1)
Quarter: 2021Q2

REPORT INFORMATION
  Report Type: Spontaneous
  Country: US (occurrence: US)
  Receive Date: 20210414
  Receipt Date: 20210414
  Transmission Date: 20210717
  Serious: No
  Sender: FDA-Public Use
  Company Number: US-BION-008694

PATIENT
  Age: 73 Year
  Sex: Female

DRUGS (2)
  1. ALEVE [Suspect]
     Active Substance: NAPROXEN SODIUM
     Indication: PAIN
     Dosage: 2 LIQUID GELS
     Route: 048
     Dates: start: 20200429, end: 20200429
  2. ASPIRIN BAYER [Concomitant]
     Active Substance: ASPIRIN
     Dosage: STRENGTH: 81 MG

REACTIONS (1)
  - Wrong technique in product usage process [Not Recovered/Not Resolved]
